FAERS Safety Report 23606212 (Version 1)
Quarter: 2024Q1

REPORT INFORMATION
  Report Type: Spontaneous
  Country: CZ (occurrence: CZ)
  Receive Date: 20240307
  Receipt Date: 20240307
  Transmission Date: 20240410
  Serious: Yes (Hospitalization, Other)
  Sender: FDA-Public Use
  Company Number: CZ-TEVA-VS-3163463

PATIENT
  Age: 43 Year
  Sex: Male

DRUGS (12)
  1. LEUCOVORIN [Suspect]
     Active Substance: LEUCOVORIN\LEUCOVORIN CALCIUM
     Indication: Pancreatic carcinoma
     Dosage: MFOLFIRINOX,FOLFIRI REGIMEN
     Route: 065
     Dates: start: 202105
  2. LEUCOVORIN [Suspect]
     Active Substance: LEUCOVORIN\LEUCOVORIN CALCIUM
     Indication: Pancreatic carcinoma
     Dosage: SECOND-LINE PALLIATIVE REGIMEN
     Route: 048
  3. PACLITAXEL [Suspect]
     Active Substance: PACLITAXEL
     Indication: Pancreatic carcinoma
     Route: 048
     Dates: start: 202112
  4. OXALIPLATIN [Suspect]
     Active Substance: OXALIPLATIN
     Indication: Pancreatic carcinoma
     Dosage: MFOLFIRINOX
     Route: 065
     Dates: start: 202105
  5. BETAHISTINE [Suspect]
     Active Substance: BETAHISTINE
     Indication: Vertigo
     Route: 065
  6. GEMCITABINE [Suspect]
     Active Substance: GEMCITABINE
     Indication: Pancreatic carcinoma
     Route: 048
     Dates: start: 202112
  7. PREDNISONE [Suspect]
     Active Substance: PREDNISONE
     Indication: Vertigo
     Route: 065
  8. FLUOROURACIL [Suspect]
     Active Substance: FLUOROURACIL
     Indication: Pancreatic carcinoma
     Dosage: MFOLFIRINOX,FOLFIRI REGIMEN
     Route: 065
     Dates: start: 202105
  9. FLUOROURACIL [Suspect]
     Active Substance: FLUOROURACIL
     Indication: Pancreatic carcinoma
     Dosage: SECOND-LINE PALLIATIVE REGIMEN
     Route: 048
  10. ONIVYDE [Suspect]
     Active Substance: IRINOTECAN HYDROCHLORIDE
     Indication: Pancreatic carcinoma
     Dosage: MFOLFIRINOX, FOLFIRI REGIMEN
     Route: 065
     Dates: start: 202105
  11. ONIVYDE [Suspect]
     Active Substance: IRINOTECAN HYDROCHLORIDE
     Indication: Pancreatic carcinoma
     Dosage: SECOND-LINE PALLIATIVE REGIMEN
     Route: 048
  12. ONIVYDE [Suspect]
     Active Substance: IRINOTECAN HYDROCHLORIDE
     Indication: Pancreatic carcinoma
     Route: 048

REACTIONS (13)
  - Drug intolerance [Unknown]
  - Sudden hearing loss [Recovered/Resolved with Sequelae]
  - Nausea [Recovered/Resolved]
  - Haematotoxicity [Unknown]
  - Diarrhoea [Recovered/Resolved]
  - Vomiting [Recovered/Resolved]
  - Vertigo [Recovered/Resolved with Sequelae]
  - Neutropenia [Unknown]
  - Pain in extremity [Recovered/Resolved]
  - Decreased appetite [Recovered/Resolved]
  - Ototoxicity [Recovered/Resolved with Sequelae]
  - Hypophagia [Unknown]
  - Drug ineffective [Unknown]

NARRATIVE: CASE EVENT DATE: 20210101
